FAERS Safety Report 18416863 (Version 1)
Quarter: 2020Q4

REPORT INFORMATION
  Report Type: Spontaneous
  Country: NL (occurrence: NL)
  Receive Date: 20201022
  Receipt Date: 20201022
  Transmission Date: 20210114
  Serious: Yes (Death)
  Sender: FDA-Public Use
  Company Number: NL-MYLANLABS-2020M1088848

PATIENT
  Age: 51 Year

DRUGS (7)
  1. ATEZOLIZUMAB. [Suspect]
     Active Substance: ATEZOLIZUMAB
     Indication: NON-SMALL CELL LUNG CANCER
     Dosage: UNK
     Route: 065
     Dates: start: 20190314, end: 20190905
  2. GEFITINIB. [Suspect]
     Active Substance: GEFITINIB
     Dosage: UNK
     Route: 065
     Dates: start: 20190314
  3. CARBOPLATIN. [Suspect]
     Active Substance: CARBOPLATIN
     Indication: NON-SMALL CELL LUNG CANCER
     Dosage: UNK
     Route: 065
     Dates: start: 20190314, end: 20190905
  4. GEFITINIB. [Suspect]
     Active Substance: GEFITINIB
     Indication: PRODUCT USED FOR UNKNOWN INDICATION
     Dosage: 250 MILLIGRAM
     Route: 065
     Dates: start: 201510
  5. PACLITAXEL. [Suspect]
     Active Substance: PACLITAXEL
     Indication: NON-SMALL CELL LUNG CANCER
     Dosage: UNK
     Route: 065
     Dates: start: 20190314, end: 20190905
  6. PEMETREXED. [Concomitant]
     Active Substance: PEMETREXED
     Indication: NON-SMALL CELL LUNG CANCER
     Dosage: UNK
     Dates: start: 2015
  7. BEVACIZUMAB. [Suspect]
     Active Substance: BEVACIZUMAB
     Indication: NON-SMALL CELL LUNG CANCER
     Dosage: UNK
     Route: 065
     Dates: start: 20190314, end: 20190905

REACTIONS (2)
  - Death [Fatal]
  - Hypophysitis [Unknown]

NARRATIVE: CASE EVENT DATE: 20200709
